FAERS Safety Report 5116998-2 (Version None)
Quarter: 2006Q3

REPORT INFORMATION
  Report Type: 
  Country: None (occurrence: None)
  Receive Date: 20060928
  Receipt Date: 20060913
  Transmission Date: 20061208
  Serious: Yes (Life-Threatening, Other)
  Sender: FDA-Public Use
  Company Number: JP-MERCK-0609USA03106

PATIENT
  Age: 40 Year
  Sex: Male
  Weight: 75 kg

DRUGS (4)
  1. PRIMAXIN [Suspect]
     Indication: SEPSIS
     Route: 042
     Dates: start: 20060829, end: 20060829
  2. PL-GRANULES [Concomitant]
     Indication: PHARYNGITIS
     Route: 048
     Dates: start: 20060825, end: 20060828
  3. DASEN [Concomitant]
     Indication: PHARYNGITIS
     Route: 048
  4. TRANSAMIN [Concomitant]
     Indication: PHARYNGITIS
     Route: 048

REACTIONS (8)
  - BLOOD PRESSURE DECREASED [None]
  - CONVULSION [None]
  - HEART RATE INCREASED [None]
  - INFECTION [None]
  - RENAL FAILURE [None]
  - RESTLESSNESS [None]
  - SEPTIC SHOCK [None]
  - VOMITING [None]
